FAERS Safety Report 8557922-X (Version None)
Quarter: 2012Q3

REPORT INFORMATION
  Report Type: 
  Country: None (occurrence: None)
  Receive Date: 20120801
  Receipt Date: 20120724
  Transmission Date: 20120928
  Serious: Yes (Other)
  Sender: FDA-Public Use
  Company Number: US-BRISTOL-MYERS SQUIBB COMPANY-16798795

PATIENT
  Age: 49 Year
  Sex: Female

DRUGS (1)
  1. ORENCIA [Suspect]
     Dosage: 1DF:1 VIAL  LAST INF WAS 6-7 WEEKS AGO
     Route: 042

REACTIONS (2)
  - ARTHROPATHY [None]
  - BONE DISORDER [None]
